FAERS Safety Report 25014551 (Version 1)
Quarter: 2025Q1

REPORT INFORMATION
  Report Type: Spontaneous
  Country: US (occurrence: None)
  Receive Date: 20250226
  Receipt Date: 20250226
  Transmission Date: 20250408
  Serious: Yes (Hospitalization)
  Sender: FDA-CTU
  Company Number: None

PATIENT
  Age: 46 Year
  Sex: Male

DRUGS (7)
  1. VUMERITY [Suspect]
     Active Substance: DIROXIMEL FUMARATE
     Indication: Multiple sclerosis
     Dosage: FREQUENCY : TWICE A DAY;?
     Route: 048
  2. Nifedipine 30 mg ER tablet [Concomitant]
     Dates: start: 20240715
  3. IBUPROFEN [Concomitant]
     Active Substance: IBUPROFEN
     Dates: start: 20240715
  4. AMLODIPINE BESYLATE [Concomitant]
     Active Substance: AMLODIPINE BESYLATE
     Dates: start: 20221028
  5. Docusate sodium 100 mg capsule [Concomitant]
     Dates: start: 20240913
  6. FUROSEMIDE [Concomitant]
     Active Substance: FUROSEMIDE
     Dates: start: 20240718, end: 20241213
  7. acetaminophen 500 mg tablet [Concomitant]
     Dates: start: 20240715

REACTIONS (2)
  - Influenza [None]
  - Abdominal pain [None]

NARRATIVE: CASE EVENT DATE: 20250225
